FAERS Safety Report 16630014 (Version 4)
Quarter: 2019Q3

REPORT INFORMATION
  Report Type: Spontaneous
  Country: US (occurrence: US)
  Receive Date: 20190725
  Receipt Date: 20190919
  Transmission Date: 20191004
  Serious: Yes (Other)
  Sender: FDA-Public Use
  Company Number: US-PFIZER INC-2019315193

PATIENT
  Age: 79 Year
  Sex: Female
  Weight: 65 kg

DRUGS (5)
  1. AMLODIPINE BESILATE [Suspect]
     Active Substance: AMLODIPINE BESYLATE
     Indication: PULMONARY HYPERTENSION
     Dosage: 10 MG, 1X/DAY (AT NIGHT)
     Route: 048
  2. EDARBI [Concomitant]
     Active Substance: AZILSARTAN KAMEDOXOMIL
     Indication: BLOOD PRESSURE ABNORMAL
     Dosage: 80 MG, DAILY
  3. ATENOLOL. [Concomitant]
     Active Substance: ATENOLOL
     Indication: ARRHYTHMIA
     Dosage: 75 MG, DAILY  (50MG IN THE MORNING 25MG AT NIGHT)
  4. HYDROCHLOROTHIAZIDE. [Concomitant]
     Active Substance: HYDROCHLOROTHIAZIDE
     Indication: PULMONARY HYPERTENSION
     Dosage: 25 MG, DAILY
  5. POTASSIUM [Concomitant]
     Active Substance: POTASSIUM
     Indication: BLOOD POTASSIUM DECREASED
     Dosage: 10 MG, 2X/DAY

REACTIONS (15)
  - Muscle spasms [Not Recovered/Not Resolved]
  - Amyotrophic lateral sclerosis [Unknown]
  - Muscular weakness [Unknown]
  - Limb discomfort [Unknown]
  - Weight decreased [Not Recovered/Not Resolved]
  - Dyskinesia [Unknown]
  - Cerebrovascular accident [Not Recovered/Not Resolved]
  - Dementia Alzheimer^s type [Unknown]
  - Tremor [Unknown]
  - Musculoskeletal stiffness [Not Recovered/Not Resolved]
  - Gait disturbance [Not Recovered/Not Resolved]
  - Hypotonia [Not Recovered/Not Resolved]
  - Muscle rigidity [Not Recovered/Not Resolved]
  - Swelling [Unknown]
  - Peroneal nerve palsy [Unknown]

NARRATIVE: CASE EVENT DATE: 2019
